FAERS Safety Report 7919252-6 (Version None)
Quarter: 2011Q4

REPORT INFORMATION
  Report Type: 
  Country: None (occurrence: None)
  Receive Date: 20111114
  Receipt Date: 20111104
  Transmission Date: 20120403
  Serious: Yes (Hospitalization)
  Sender: FDA-Public Use
  Company Number: PIR#400120011-CASE 4

PATIENT
  Age: 22 Year
  Sex: Male

DRUGS (1)
  1. METRONIDAZOLE [Suspect]

REACTIONS (3)
  - JAUNDICE [None]
  - BIOPSY LIVER ABNORMAL [None]
  - INFLAMMATION [None]
